FAERS Safety Report 9736033 (Version 1)
Quarter: 2013Q4

REPORT INFORMATION
  Report Type: Spontaneous
  Country: US (occurrence: US)
  Receive Date: 20131206
  Receipt Date: 20131206
  Transmission Date: 20140711
  Serious: No
  Sender: FDA-Public Use
  Company Number: US-PFIZER INC-2013345133

PATIENT
  Sex: Male

DRUGS (3)
  1. ADVIL [Suspect]
     Indication: PAIN
     Dosage: TWO TABLETS AT NIGHT TIME ONCE A DAY
     Route: 048
  2. ADVIL [Suspect]
     Indication: SLEEP DISORDER
  3. ADVIL [Suspect]
     Dosage: UNK

REACTIONS (4)
  - Off label use [Unknown]
  - Epigastric discomfort [Unknown]
  - Abdominal pain upper [Unknown]
  - Gastric disorder [Unknown]
